FAERS Safety Report 7709031-7 (Version None)
Quarter: 2011Q3

REPORT INFORMATION
  Report Type: 
  Country: None (occurrence: None)
  Receive Date: 20110819
  Receipt Date: 20110804
  Transmission Date: 20111222
  Serious: Yes (Death)
  Sender: FDA-Public Use
  Company Number: 2011178347

PATIENT
  Age: 53 Year
  Sex: Female

DRUGS (3)
  1. FRAGMIN [Suspect]
     Indication: PULMONARY EMBOLISM
     Dosage: 7500 IU, 2X/DAY, SUBCUTANEOUS
     Route: 058
     Dates: start: 20110301
  2. MAREVAN ^NYCOMED^ (WARFARIN SODIUM) [Concomitant]
  3. ARGATROBAN [Suspect]
     Dosage: 1,5 ML/HOUR, IV DRIP
     Route: 041
     Dates: start: 20110316, end: 20110326

REACTIONS (5)
  - THROMBOCYTOPENIA [None]
  - GASTROINTESTINAL HAEMORRHAGE [None]
  - INTERNATIONAL NORMALISED RATIO INCREASED [None]
  - CARDIAC ARREST [None]
  - PERITONEAL HAEMORRHAGE [None]
